FAERS Safety Report 20863628 (Version 3)
Quarter: 2023Q4

REPORT INFORMATION
  Report Type: Spontaneous
  Country: LT (occurrence: LT)
  Receive Date: 20220523
  Receipt Date: 20231009
  Transmission Date: 20240109
  Serious: Yes (Hospitalization, Other)
  Sender: FDA-Public Use
  Company Number: LT-009507513-2205LTU005385

PATIENT
  Age: 68 Year
  Sex: Male

DRUGS (4)
  1. PEMBROLIZUMAB [Suspect]
     Active Substance: PEMBROLIZUMAB
     Dosage: EVERY 3 WEEKS (Q3W)
     Dates: start: 202109, end: 20220221
  2. PEMETREXED [Suspect]
     Active Substance: PEMETREXED
     Indication: Lung carcinoma cell type unspecified stage IV
     Dosage: UNK
     Dates: start: 202109, end: 20220221
  3. CISPLATIN [Suspect]
     Active Substance: CISPLATIN
     Indication: Lung carcinoma cell type unspecified stage IV
     Dosage: UNK
     Dates: start: 202109, end: 202112
  4. METHOTREXATE [Concomitant]
     Active Substance: METHOTREXATE
     Dosage: 15 MILLIGRAM PER WEEK (QW)

REACTIONS (10)
  - Rheumatoid arthritis [Unknown]
  - Bronchostenosis [Unknown]
  - Malignant neoplasm progression [Unknown]
  - Asthenia [Unknown]
  - Pneumonitis [Unknown]
  - Staphylococcus test positive [Unknown]
  - Candida test positive [Unknown]
  - Lung consolidation [Unknown]
  - Emphysema [Unknown]
  - Enterococcus test positive [Unknown]

NARRATIVE: CASE EVENT DATE: 20210101
